FAERS Safety Report 23268107 (Version 1)
Quarter: 2023Q4

REPORT INFORMATION
  Report Type: Spontaneous
  Country: US (occurrence: US)
  Receive Date: 20231206
  Receipt Date: 20231206
  Transmission Date: 20240110
  Serious: No
  Sender: FDA-Public Use
  Company Number: US-BRAINTREE LABORATORIES, INC.-2023BTE00609

PATIENT
  Age: 70 Year
  Sex: Female
  Weight: 78.458 kg

DRUGS (4)
  1. SUTAB [Suspect]
     Active Substance: MAGNESIUM SULFATE\POTASSIUM CHLORIDE\SODIUM SULFATE
     Indication: Colonoscopy
     Dosage: 1 X 20 TABLETS, 1X
     Route: 048
     Dates: start: 20230823, end: 202308
  2. LEVOXYL [Concomitant]
     Active Substance: LEVOTHYROXINE SODIUM
     Dosage: UNK
  3. TIMOLOL [Concomitant]
     Active Substance: TIMOLOL
     Dosage: UNK
  4. DIAZEPAM [Concomitant]
     Active Substance: DIAZEPAM
     Dosage: AS NEEDED

REACTIONS (3)
  - Headache [Recovering/Resolving]
  - Nausea [Recovering/Resolving]
  - Vomiting [Recovered/Resolved]

NARRATIVE: CASE EVENT DATE: 20230823
